FAERS Safety Report 7644342-5 (Version None)
Quarter: 2011Q3

REPORT INFORMATION
  Report Type: 
  Country: None (occurrence: None)
  Receive Date: 20110728
  Receipt Date: 20110728
  Transmission Date: 20111222
  Serious: Yes (Other)
  Sender: FDA-Public Use
  Company Number: None

PATIENT
  Age: 32 Year
  Sex: Female

DRUGS (1)
  1. MULTIHANCE [Suspect]
     Indication: NUCLEAR MAGNETIC RESONANCE IMAGING
     Dosage: 13 ML IV IMMEDIATE - ONE TIME DOSE
     Route: 042
     Dates: start: 20101122

REACTIONS (2)
  - URTICARIA [None]
  - CONTRAST MEDIA REACTION [None]
